FAERS Safety Report 12594449 (Version 2)
Quarter: 2017Q1

REPORT INFORMATION
  Report Type: Spontaneous
  Country: US (occurrence: US)
  Receive Date: 20160726
  Receipt Date: 20170123
  Transmission Date: 20170428
  Serious: No
  Sender: FDA-Public Use
  Company Number: US-UNITED THERAPEUTICS-UNT-2015-016036

PATIENT
  Age: 61 Year
  Sex: Male
  Weight: 65.76 kg

DRUGS (8)
  1. ORENITRAM [Suspect]
     Active Substance: TREPROSTINIL
     Indication: PULMONARY ARTERIAL HYPERTENSION
     Dosage: 1.125 MG, TID
     Route: 048
     Dates: start: 20151118, end: 20160915
  2. ORENITRAM [Suspect]
     Active Substance: TREPROSTINIL
     Dosage: 0.75MG,TID
     Route: 048
  3. ORENITRAM [Suspect]
     Active Substance: TREPROSTINIL
     Dosage: 2.03 MG, TID
     Route: 048
  4. ADCIRCA [Concomitant]
     Active Substance: TADALAFIL
     Indication: PRODUCT USED FOR UNKNOWN INDICATION
     Route: 065
  5. ORENITRAM [Suspect]
     Active Substance: TREPROSTINIL
     Dosage: UNK
     Route: 048
  6. WARFARIN [Concomitant]
     Active Substance: WARFARIN
     Indication: PRODUCT USED FOR UNKNOWN INDICATION
     Route: 065
  7. ORENITRAM [Suspect]
     Active Substance: TREPROSTINIL
     Dosage: UNK
     Route: 048
  8. ORENITRAM [Suspect]
     Active Substance: TREPROSTINIL
     Dosage: 0.875 MG, TID
     Route: 048

REACTIONS (7)
  - Incorrect dose administered [Unknown]
  - Diarrhoea [Unknown]
  - Gastrooesophageal reflux disease [Recovered/Resolved]
  - Gastrointestinal disorder [Recovered/Resolved]
  - Multiple sclerosis [Unknown]
  - Drug ineffective [Recovered/Resolved]
  - Pain in jaw [Unknown]

NARRATIVE: CASE EVENT DATE: 201512
